FAERS Safety Report 10248623 (Version 5)
Quarter: 2014Q3

REPORT INFORMATION
  Report Type: Spontaneous
  Country: AU (occurrence: None)
  Receive Date: 20140618
  Receipt Date: 20140723
  Transmission Date: 20150326
  Serious: Yes (Other)
  Sender: FDA-Public Use
  Company Number: AUR-APL-2014-06137

PATIENT
  Sex: Female
  Weight: 2.7 kg

DRUGS (4)
  1. FERROGRAD C [Concomitant]
     Active Substance: ASCORBIC ACID\FERROUS SULFATE
  2. RANITIDINE [Concomitant]
     Active Substance: RANITIDINE\RANITIDINE HYDROCHLORIDE
  3. QUETIAPINE [Suspect]
     Active Substance: QUETIAPINE
     Indication: PRODUCT USED FOR UNKNOWN INDICATION
     Dosage: 200 MG, DAILY, TRANSPLACENTAL
     Route: 064
  4. ELEVIT RDI (MINERALS NOS, VITAMINS NOS) [Concomitant]

REACTIONS (7)
  - Maternal drugs affecting foetus [None]
  - Feeding disorder [None]
  - Tremor neonatal [None]
  - Foetal exposure during pregnancy [None]
  - Drug withdrawal syndrome neonatal [None]
  - Tremor [None]
  - Weight decrease neonatal [None]

NARRATIVE: CASE EVENT DATE: 2012
